FAERS Safety Report 8362145-3 (Version None)
Quarter: 2012Q2

REPORT INFORMATION
  Report Type: 
  Country: None (occurrence: None)
  Receive Date: 20120515
  Receipt Date: 20120502
  Transmission Date: 20120825
  Serious: Yes (Other)
  Sender: FDA-Public Use
  Company Number: IT-TEVA-336993ISR

PATIENT
  Sex: Male

DRUGS (1)
  1. CISPLATIN [Suspect]
     Dosage: 140 MILLIGRAM;
     Route: 042
     Dates: start: 20120305, end: 20120328

REACTIONS (4)
  - VOMITING [None]
  - HYPERHIDROSIS [None]
  - LOSS OF CONSCIOUSNESS [None]
  - HYPOTENSION [None]
